FAERS Safety Report 6978863-5 (Version None)
Quarter: 2010Q3

REPORT INFORMATION
  Report Type: 
  Country: None (occurrence: None)
  Receive Date: 20100913
  Receipt Date: 20100831
  Transmission Date: 20110219
  Serious: Yes (Hospitalization)
  Sender: FDA-Public Use
  Company Number: BR-MEDIMMUNE-MEDI-0011526

PATIENT
  Sex: Male
  Weight: 7.3 kg

DRUGS (2)
  1. SYNAGIS [Suspect]
     Indication: INFLUENZA
     Route: 030
     Dates: start: 20100710, end: 20100710
  2. SYNAGIS [Suspect]
     Route: 030
     Dates: start: 20100809, end: 20100809

REACTIONS (2)
  - ANAEMIA [None]
  - PNEUMONIA [None]
